FAERS Safety Report 6430891-4 (Version None)
Quarter: 2009Q4

REPORT INFORMATION
  Report Type: 
  Country: None (occurrence: None)
  Receive Date: 20091106
  Receipt Date: 20091026
  Transmission Date: 20100525
  Serious: Yes (Other)
  Sender: FDA-Public Use
  Company Number: JP-PFIZER INC-2009289944

PATIENT
  Sex: Male

DRUGS (1)
  1. SOLANAX [Suspect]
     Route: 048
     Dates: start: 20040901, end: 20090712

REACTIONS (8)
  - CATARACT [None]
  - EYE PAIN [None]
  - FEELING ABNORMAL [None]
  - HYPOAESTHESIA [None]
  - INTRAOCULAR PRESSURE INCREASED [None]
  - PHOTOPHOBIA [None]
  - THIRST [None]
  - VISUAL ACUITY REDUCED [None]
